FAERS Safety Report 7959606-5 (Version None)
Quarter: 2011Q4

REPORT INFORMATION
  Report Type: 
  Country: None (occurrence: None)
  Receive Date: 20111206
  Receipt Date: 20111125
  Transmission Date: 20120403
  Serious: Yes (Other)
  Sender: FDA-Public Use
  Company Number: CO-JNJFOC-20111111502

PATIENT
  Sex: Male

DRUGS (2)
  1. REMICADE [Suspect]
     Indication: RHEUMATOID ARTHRITIS
     Route: 042
     Dates: start: 20111115
  2. REMICADE [Suspect]
     Route: 042
     Dates: start: 20100919

REACTIONS (4)
  - FEELING HOT [None]
  - CHEST PAIN [None]
  - INFUSION RELATED REACTION [None]
  - RESPIRATORY DISTRESS [None]
